FAERS Safety Report 11124241 (Version 2)
Quarter: 2015Q3

REPORT INFORMATION
  Report Type: Spontaneous
  Country: US (occurrence: None)
  Receive Date: 20150518
  Receipt Date: 20150715
  Transmission Date: 20151125
  Serious: Yes (Hospitalization, Other)
  Sender: FDA-Public Use
  Company Number: 2015-11286

PATIENT
  Age: 82 Year

DRUGS (5)
  1. AREDS 2 VITAMINS (ASCORBIC ACID, BETACAROTENE, CUPRIC OXIDE, TOCOPHERYL ACETATE, ZINC OXIDE) [Concomitant]
  2. SIMVASTATIN (SIMVASTATIN) [Concomitant]
     Active Substance: SIMVASTATIN
  3. LISINOPRIL (LISINOPRIL) [Concomitant]
     Active Substance: LISINOPRIL
  4. EYLEA [Suspect]
     Active Substance: AFLIBERCEPT
     Indication: RETINAL VEIN OCCLUSION
     Dosage: 2 MG MILLIGRAM(S), IN OD, INTRAOCULAR
     Route: 031
     Dates: start: 20120213
  5. TRAMADOL (TRAMADOL) [Concomitant]
     Active Substance: TRAMADOL

REACTIONS (1)
  - Hospitalisation [None]

NARRATIVE: CASE EVENT DATE: 20150503
